FAERS Safety Report 9194620 (Version 1)
Quarter: 2013Q1

REPORT INFORMATION
  Report Type: Spontaneous
  Country: US (occurrence: US)
  Receive Date: 20130327
  Receipt Date: 20130327
  Transmission Date: 20140127
  Serious: Yes (Death)
  Sender: FDA-Public Use
  Company Number: US-OTSUKA-US-2013-10459

PATIENT
  Age: 66 Year
  Sex: Female
  Weight: 45.35 kg

DRUGS (3)
  1. SAMSCA [Suspect]
     Indication: INAPPROPRIATE ANTIDIURETIC HORMONE SECRETION
     Dosage: 15 MG MILLIGRAM(S), QD
     Dates: end: 20130222
  2. SAMSCA [Suspect]
     Dosage: 30 MG MILLIGRAM(S), QD
     Dates: end: 20130222
  3. SAMSCA [Suspect]
     Dosage: 60 MG MILLIGRAM(S), QD
     Dates: end: 20130222

REACTIONS (3)
  - Death [Fatal]
  - Leukaemia [Fatal]
  - Infection [Fatal]
